FAERS Safety Report 18534405 (Version 1)
Quarter: 2020Q4

REPORT INFORMATION
  Report Type: Spontaneous
  Country: US (occurrence: US)
  Receive Date: 20201123
  Receipt Date: 20201123
  Transmission Date: 20210114
  Serious: Yes (Hospitalization)
  Sender: FDA-Public Use
  Company Number: US-ACCORD-208868

PATIENT
  Age: 2 Year
  Sex: Female
  Weight: 14 kg

DRUGS (12)
  1. TEMOZOLOMIDE. [Suspect]
     Active Substance: TEMOZOLOMIDE
     Indication: HEPATOBLASTOMA
     Dosage: DAYS 1-5 OF 21 DAY CYCLE
     Route: 041
     Dates: start: 20191219
  2. ATROPINE. [Concomitant]
     Active Substance: ATROPINE
     Dates: start: 20201102
  3. HYDROCODONE BITARTRATE AND ACETAMINOPHEN [Concomitant]
     Active Substance: ACETAMINOPHEN\HYDROCODONE BITARTRATE
     Indication: PAIN
     Dates: start: 20201029, end: 20201029
  4. SYRPALTA [Concomitant]
     Dates: start: 20201102
  5. ONDANSETRON [Concomitant]
     Active Substance: ONDANSETRON
     Indication: PROPHYLAXIS OF NAUSEA AND VOMITING
     Dates: start: 20201029
  6. PROPOFOL. [Concomitant]
     Active Substance: PROPOFOL
     Indication: ANAESTHESIA
     Dates: start: 20201029, end: 20201029
  7. IRINOTECAN [Suspect]
     Active Substance: IRINOTECAN
     Indication: HEPATOBLASTOMA
     Dosage: DAYS 1-5 OF 21 DAY CYCLE
     Route: 041
     Dates: start: 20191219
  8. FENTANYL. [Concomitant]
     Active Substance: FENTANYL
     Indication: PAIN
     Dates: start: 20201029, end: 20201029
  9. PALBOCICLIB [Suspect]
     Active Substance: PALBOCICLIB
     Indication: HEPATOBLASTOMA
     Dosage: DAYS 1-14 OF 21 DAY CYCLE
     Route: 048
     Dates: start: 20191219
  10. PEGFILGRASTIM [Concomitant]
     Active Substance: PEGFILGRASTIM
     Dates: start: 20201107, end: 20201107
  11. CEFIXIME/CEFIXIME TRIHYDRATE [Concomitant]
     Active Substance: CEFIXIME
     Indication: PROPHYLAXIS AGAINST DIARRHOEA
     Dates: start: 20201031, end: 20201109
  12. CEFAZOLIN [Concomitant]
     Active Substance: CEFAZOLIN
     Indication: PROPHYLAXIS
     Dates: start: 20201029, end: 20201029

REACTIONS (4)
  - Dehydration [Not Recovered/Not Resolved]
  - Off label use [Unknown]
  - Vomiting [Not Recovered/Not Resolved]
  - Urinary tract infection [Not Recovered/Not Resolved]

NARRATIVE: CASE EVENT DATE: 20201107
